FAERS Safety Report 9154395 (Version 1)
Quarter: 2013Q1

REPORT INFORMATION
  Report Type: Report from Study
  Country: US (occurrence: US)
  Receive Date: 20130311
  Receipt Date: 20130311
  Transmission Date: 20140127
  Serious: No
  Sender: FDA-Public Use
  Company Number: US-ABBOTT-12P-163-1001902-00

PATIENT
  Age: 34 Year
  Sex: Female
  Weight: 80.81 kg

DRUGS (6)
  1. LUPRON DEPOT [Suspect]
     Indication: ENDOMETRIOSIS
     Route: 030
     Dates: start: 20121022
  2. NOR ETHINDRONE ACETATE [Concomitant]
     Indication: PROPHYLAXIS
     Dates: start: 20121023
  3. AMITIZA [Concomitant]
     Indication: IRRITABLE BOWEL SYNDROME
  4. ADIPX P [Concomitant]
     Indication: WEIGHT DECREASED
  5. LASIX [Concomitant]
     Indication: FLUID RETENTION
  6. CYMBALTA [Concomitant]
     Indication: FIBROMYALGIA

REACTIONS (8)
  - Hypophagia [Not Recovered/Not Resolved]
  - Headache [Not Recovered/Not Resolved]
  - Hot flush [Not Recovered/Not Resolved]
  - Dizziness [Not Recovered/Not Resolved]
  - Paraesthesia [Not Recovered/Not Resolved]
  - Anxiety [Not Recovered/Not Resolved]
  - Palpitations [Not Recovered/Not Resolved]
  - Palpitations [Not Recovered/Not Resolved]
